FAERS Safety Report 8795477 (Version 3)
Quarter: 2014Q2

REPORT INFORMATION
  Report Type: Report from Study
  Country: US (occurrence: US)
  Receive Date: 20120917
  Receipt Date: 20131017
  Transmission Date: 20141212
  Serious: Yes (Hospitalization)
  Sender: FDA-Public Use
  Company Number: US-PFIZER INC-2012227240

PATIENT
  Age: 36 Year
  Sex: Male

DRUGS (4)
  1. CYTARABINE [Suspect]
     Indication: ACUTE MYELOID LEUKAEMIA
     Dosage: CONSOLIDATION: 1000 OR 3000 MG (AGE BASED DOSE), CYCLIC, ON DAYS 1, 3, 5
     Route: 042
     Dates: start: 20120330
  2. IDARUBICIN HCL [Suspect]
     Indication: ACUTE MYELOID LEUKAEMIA
     Dosage: INDUCTION: 12 MG/M2 (23 MG), CYCLIC, ON DAYS 1, 2, 3
     Route: 042
     Dates: start: 20120330, end: 20120401
  3. SPRYCEL [Suspect]
     Indication: ACUTE MYELOID LEUKAEMIA
     Dosage: CONSOLIDATION: 100 MG, CYCLIC, ON DAYS 6-26 OR 13-33 AS PER PROTOCOL
     Route: 048
     Dates: start: 20120330
  4. DAUNORUBICIN [Suspect]
     Indication: ACUTE MYELOID LEUKAEMIA
     Dosage: INDUCTION: 60 MG/M2, CYCLIC, ON DAYS 1, 2, 3
     Route: 042

REACTIONS (2)
  - Pneumonia [Recovering/Resolving]
  - Left ventricular dysfunction [Recovering/Resolving]
